FAERS Safety Report 18884042 (Version 1)
Quarter: 2021Q1

REPORT INFORMATION
  Report Type: Report from Study
  Country: GB (occurrence: GB)
  Receive Date: 20210211
  Receipt Date: 20210211
  Transmission Date: 20210420
  Serious: Yes (Other)
  Sender: FDA-Public Use
  Company Number: GB-GILEAD-2021-0517064

PATIENT
  Sex: Male

DRUGS (3)
  1. EMTRICITABINE/TENOFOVIR ALAFENAMIDE [Suspect]
     Active Substance: EMTRICITABINE\TENOFOVIR
     Indication: PRODUCT USED FOR UNKNOWN INDICATION
     Dosage: 1 DOSAGE FORM, 200/10MG
     Route: 065
  2. ATAZANAVIR. [Concomitant]
     Active Substance: ATAZANAVIR
     Dosage: 300 MG, QD
  3. RITONAVIR. [Concomitant]
     Active Substance: RITONAVIR
     Dosage: 100 MG, QD

REACTIONS (1)
  - Neoplasm malignant [Not Recovered/Not Resolved]
